FAERS Safety Report 21083514 (Version 1)
Quarter: 2022Q3

REPORT INFORMATION
  Report Type: Spontaneous
  Country: US (occurrence: None)
  Receive Date: 20220714
  Receipt Date: 20220714
  Transmission Date: 20221027
  Serious: Yes (Hospitalization)
  Sender: FDA-Public Use
  Company Number: None

PATIENT
  Age: 81 Year
  Sex: Male

DRUGS (1)
  1. SODIUM FERRIC GLUCONATE COMPLEX [Suspect]
     Active Substance: SODIUM FERRIC GLUCONATE COMPLEX
     Indication: Anaemia
     Dosage: 250 MG QWEEK IV?
     Route: 042
     Dates: start: 20220615, end: 20220615

REACTIONS (7)
  - Hiccups [None]
  - Nausea [None]
  - Hypotension [None]
  - Sepsis [None]
  - Metabolic acidosis [None]
  - Pericardial effusion [None]
  - Infusion related reaction [None]

NARRATIVE: CASE EVENT DATE: 20220615
